FAERS Safety Report 5512951-5 (Version None)
Quarter: 2007Q4

REPORT INFORMATION
  Report Type: 
  Country: None (occurrence: None)
  Receive Date: 20071112
  Receipt Date: 20071107
  Transmission Date: 20080405
  Serious: Yes (Death, Life-Threatening, Hospitalization, Other)
  Sender: FDA-Public Use
  Company Number: US-MERCK-0707USA05058

PATIENT
  Age: 76 Year
  Sex: Female

DRUGS (21)
  1. FOSAMAX [Suspect]
     Indication: OSTEOPOROSIS
     Route: 048
     Dates: start: 20050101, end: 20060626
  2. FOSAMAX [Suspect]
     Route: 048
     Dates: start: 20020301, end: 20050101
  3. ZYRTEC [Concomitant]
     Route: 065
  4. PROTONIX [Concomitant]
     Route: 048
  5. ASPIRIN [Concomitant]
     Route: 065
  6. TOPROL-XL [Concomitant]
     Route: 048
  7. ZESTRIL [Concomitant]
     Route: 065
  8. EVISTA [Concomitant]
     Route: 065
  9. TOPAMAX [Concomitant]
     Route: 065
  10. OS-CAL D [Concomitant]
     Route: 065
  11. PREDNISONE [Concomitant]
     Route: 048
  12. LASIX [Concomitant]
     Route: 048
  13. LASIX [Concomitant]
     Route: 048
  14. SPIRONOLACTONE [Concomitant]
     Route: 048
  15. ECOTRIN [Concomitant]
     Route: 065
  16. EVISTA [Concomitant]
     Route: 065
  17. ZESTORETIC [Concomitant]
     Route: 065
  18. POTASSIUM CHLORIDE [Concomitant]
     Route: 065
  19. VITAMIN E [Concomitant]
     Route: 065
  20. TORSEMIDE [Concomitant]
     Route: 065
  21. RESTORIL [Concomitant]
     Route: 065

REACTIONS (40)
  - ABDOMINAL PAIN UPPER [None]
  - ACTINIC KERATOSIS [None]
  - ANAEMIA [None]
  - AORTIC ANEURYSM RUPTURE [None]
  - ASCITES [None]
  - ASTHENIA [None]
  - ATRIAL FIBRILLATION [None]
  - AUTOIMMUNE HEPATITIS [None]
  - CARDIAC FAILURE CONGESTIVE [None]
  - COAGULATION TIME PROLONGED [None]
  - COAGULOPATHY [None]
  - CONFUSIONAL STATE [None]
  - DIABETES MELLITUS [None]
  - DYSLIPIDAEMIA [None]
  - EYELID PTOSIS [None]
  - FALL [None]
  - GASTRIC ULCER [None]
  - GASTROINTESTINAL HAEMORRHAGE [None]
  - HEPATIC CIRRHOSIS [None]
  - HEPATIC FAILURE [None]
  - HIATUS HERNIA [None]
  - HYPONATRAEMIA [None]
  - HYPOTENSION [None]
  - HYPOVOLAEMIA [None]
  - INSOMNIA [None]
  - IRON OVERLOAD [None]
  - JAUNDICE [None]
  - JOINT INJURY [None]
  - LIVER DISORDER [None]
  - NAUSEA [None]
  - OESOPHAGEAL STENOSIS [None]
  - OSTEONECROSIS [None]
  - RENAL FAILURE [None]
  - RENAL IMPAIRMENT [None]
  - SINUSITIS [None]
  - SQUAMOUS CELL CARCINOMA [None]
  - SQUAMOUS CELL CARCINOMA OF SKIN [None]
  - SYNCOPE [None]
  - THROMBOCYTOPENIA [None]
  - TRANSIENT ISCHAEMIC ATTACK [None]
